FAERS Safety Report 14790960 (Version 3)
Quarter: 2018Q3

REPORT INFORMATION
  Report Type: Report from Study
  Country: US (occurrence: US)
  Receive Date: 20180423
  Receipt Date: 20180808
  Transmission Date: 20181010
  Serious: Yes (Hospitalization)
  Sender: FDA-Public Use
  Company Number: US-JNJFOC-20180419283

PATIENT
  Age: 49 Year
  Sex: Female
  Weight: 88.45 kg

DRUGS (1)
  1. USTEKINUMAB [Suspect]
     Active Substance: USTEKINUMAB
     Indication: PSORIASIS
     Route: 058
     Dates: start: 201510

REACTIONS (1)
  - Abscess jaw [Recovered/Resolved]

NARRATIVE: CASE EVENT DATE: 20180224
